FAERS Safety Report 24594273 (Version 2)
Quarter: 2024Q4

REPORT INFORMATION
  Report Type: Spontaneous
  Country: JP (occurrence: JP)
  Receive Date: 20241108
  Receipt Date: 20241212
  Transmission Date: 20250115
  Serious: Yes (Death, Hospitalization, Other)
  Sender: BAYER HEALTHCARE PHARMACEUTICALS INC.
  Company Number: JP-BAYER-2024A159617

PATIENT
  Age: 8 Decade
  Sex: Male

DRUGS (8)
  1. KERENDIA [Suspect]
     Active Substance: FINERENONE
     Indication: Type 2 diabetes mellitus
     Dosage: UNK
     Dates: start: 20240412, end: 20241006
  2. KERENDIA [Suspect]
     Active Substance: FINERENONE
     Indication: Chronic kidney disease
  3. PREDNISOLONE [Suspect]
     Active Substance: PREDNISOLONE
  4. CLOPIDOGREL [Suspect]
     Active Substance: CLOPIDOGREL BISULFATE
  5. ESOMEPRAZOLE [Suspect]
     Active Substance: ESOMEPRAZOLE
  6. ALFACALCIDOL [Suspect]
     Active Substance: ALFACALCIDOL
  7. PITAVASTATIN CALCIUM [Suspect]
     Active Substance: PITAVASTATIN CALCIUM
  8. JARDIANCE [Suspect]
     Active Substance: EMPAGLIFLOZIN

REACTIONS (5)
  - Subdural haematoma [Fatal]
  - Traumatic subarachnoid haemorrhage [Fatal]
  - Cardio-respiratory arrest [Fatal]
  - Heart rate decreased [None]
  - Respiratory disorder [None]

NARRATIVE: CASE EVENT DATE: 20241006
